FAERS Safety Report 7006986-3 (Version None)
Quarter: 2010Q3

REPORT INFORMATION
  Report Type: 
  Country: None (occurrence: None)
  Receive Date: 20100922
  Receipt Date: 20100907
  Transmission Date: 20110219
  Serious: Yes (Death, Hospitalization, Other)
  Sender: FDA-Public Use
  Company Number: BR-CUBIST-2010S1001314

PATIENT
  Age: 77 Year
  Sex: Female

DRUGS (27)
  1. CUBICIN [Suspect]
     Indication: ARTHRITIS BACTERIAL
     Route: 042
     Dates: start: 20100514
  2. CUBICIN [Suspect]
     Indication: OSTEOMYELITIS
     Route: 042
     Dates: start: 20100514
  3. CUBICIN [Suspect]
     Route: 042
  4. CUBICIN [Suspect]
     Route: 042
  5. LINEZOLID [Concomitant]
     Indication: PRODUCT USED FOR UNKNOWN INDICATION
  6. AZITHROMYCIN [Concomitant]
     Indication: PRODUCT USED FOR UNKNOWN INDICATION
  7. GLUCOCORTICOIDS [Concomitant]
     Indication: PRODUCT USED FOR UNKNOWN INDICATION
  8. INSULIN DETEMIR [Concomitant]
     Indication: DIABETES MELLITUS
  9. INSULIN DETEMIR [Concomitant]
     Indication: RETINOPATHY
  10. INSULIN [Concomitant]
     Indication: DIABETES MELLITUS
  11. INSULIN [Concomitant]
     Indication: RETINOPATHY
  12. METFORMIN [Concomitant]
     Indication: DIABETES MELLITUS
  13. METFORMIN [Concomitant]
     Indication: RETINOPATHY
  14. ATENOLOL [Concomitant]
     Indication: HYPERTENSION
  15. CHLORTHALIDONE [Concomitant]
     Indication: HYPERTENSION
  16. IRBESARTAN [Concomitant]
     Indication: HYPERTENSION
  17. ATORVASTATIN CALCIUM [Concomitant]
     Indication: CORONARY ARTERY DISEASE
  18. ESCITALOPRAM [Concomitant]
     Indication: DEPRESSION
  19. COLCHICINE [Concomitant]
     Indication: GOUT
  20. DICLOFENAC SODIUM [Concomitant]
     Indication: PRODUCT USED FOR UNKNOWN INDICATION
  21. CODEINE [Concomitant]
     Indication: PRODUCT USED FOR UNKNOWN INDICATION
  22. ACETAMINOPHEN [Concomitant]
     Indication: PRODUCT USED FOR UNKNOWN INDICATION
  23. LEVOFLOXACIN [Concomitant]
     Indication: PRODUCT USED FOR UNKNOWN INDICATION
  24. TEICOPLANIN [Concomitant]
     Indication: PRODUCT USED FOR UNKNOWN INDICATION
  25. PIPERACILLIN W/TAZOBACTAM [Concomitant]
     Indication: PRODUCT USED FOR UNKNOWN INDICATION
  26. PREDNISONE [Concomitant]
     Indication: RASH
  27. MEROPENEM [Concomitant]
     Indication: PRODUCT USED FOR UNKNOWN INDICATION
     Dates: start: 20100514

REACTIONS (4)
  - DRUG TOXICITY [None]
  - EOSINOPHILIC PNEUMONIA [None]
  - HAEMOGLOBIN DECREASED [None]
  - PNEUMONIA [None]
